FAERS Safety Report 6977572-6 (Version None)
Quarter: 2010Q3

REPORT INFORMATION
  Report Type: 
  Country: None (occurrence: None)
  Receive Date: 20100913
  Receipt Date: 20100817
  Transmission Date: 20110219
  Serious: Yes (Other)
  Sender: FDA-Public Use
  Company Number: US-RB-013419-10

PATIENT
  Age: 19 Year
  Sex: Male

DRUGS (1)
  1. DELSYM ORANGE [Suspect]
     Route: 048

REACTIONS (2)
  - DRUG ABUSE [None]
  - NO ADVERSE EVENT [None]
